FAERS Safety Report 9423545 (Version 1)
Quarter: 2013Q3

REPORT INFORMATION
  Report Type: Spontaneous
  Country: US (occurrence: US)
  Receive Date: 20130724
  Receipt Date: 20130724
  Transmission Date: 20140515
  Serious: No
  Sender: FDA-Public Use
  Company Number: US-PFIZER INC-2013215070

PATIENT
  Sex: Female

DRUGS (4)
  1. NEURONTIN [Suspect]
     Dosage: DAILY BY 4 OF THE 300 MG
  2. NEURONTIN [Suspect]
     Dosage: 300 MG, EVERY TWO DAYS
  3. NEURONTIN [Suspect]
     Dosage: 300 MG, DAILY
  4. NEURONTIN [Suspect]
     Dosage: 300 MG, 2X/DAY

REACTIONS (2)
  - Drug ineffective [Unknown]
  - Malaise [Recovered/Resolved]
